FAERS Safety Report 23030144 (Version 1)
Quarter: 2023Q4

REPORT INFORMATION
  Report Type: Spontaneous
  Country: US (occurrence: US)
  Receive Date: 20231005
  Receipt Date: 20231005
  Transmission Date: 20240110
  Serious: No
  Sender: FDA-Public Use
  Company Number: US-SA-SAC20230929001203

PATIENT
  Sex: Male
  Weight: 97.5 kg

DRUGS (7)
  1. DUPIXENT [Suspect]
     Active Substance: DUPILUMAB
     Indication: Dermatitis atopic
     Dosage: 300 MG, QOW
     Route: 058
     Dates: start: 2018
  2. METFORMIN HYDROCHLORIDE [Concomitant]
     Active Substance: METFORMIN HYDROCHLORIDE
  3. ROSUVASTATIN CALCIUM [Concomitant]
     Active Substance: ROSUVASTATIN CALCIUM
  4. GLIPIZIDE [Concomitant]
     Active Substance: GLIPIZIDE
  5. ASPIRIN [Concomitant]
     Active Substance: ASPIRIN
  6. LOSARTAN POTASSIUM [Concomitant]
     Active Substance: LOSARTAN POTASSIUM
  7. MODERNA COVID-19 VACCINE [Concomitant]
     Active Substance: ELASOMERAN

REACTIONS (6)
  - Night sweats [Unknown]
  - Weight decreased [Unknown]
  - Dermatitis atopic [Unknown]
  - Skin fissures [Unknown]
  - Skin haemorrhage [Unknown]
  - Therapeutic response shortened [Unknown]
